FAERS Safety Report 13165193 (Version 1)
Quarter: 2017Q1

REPORT INFORMATION
  Report Type: Other
  Country: MX (occurrence: MX)
  Receive Date: 20170130
  Receipt Date: 20170130
  Transmission Date: 20170428
  Serious: Yes (Hospitalization, Other)
  Sender: FDA-Public Use
  Company Number: MX-HETERO LABS LTD-1062542

PATIENT
  Age: 40 Year
  Sex: Male

DRUGS (6)
  1. EFAVIRENZ\ EMTRICITABINE\TENOFOVIR [Suspect]
     Active Substance: EFAVIRENZ\EMTRICITABINE\TENOFOVIR DISOPROXIL FUMARATE
     Indication: HIV INFECTION
     Route: 065
  2. VANCOMYCIN HCL [Concomitant]
     Active Substance: VANCOMYCIN HYDROCHLORIDE
     Route: 065
  3. LEVOFLOXACIN. [Concomitant]
     Active Substance: LEVOFLOXACIN
  4. CASPOFUNGIN [Concomitant]
     Active Substance: CASPOFUNGIN
  5. GANCICLOVIR. [Concomitant]
     Active Substance: GANCICLOVIR
     Route: 065
  6. VALGANCICLOVIR (VALACYCLOVIR HYDROCHLORIDE) [Concomitant]
     Active Substance: VALACYCLOVIR HYDROCHLORIDE

REACTIONS (2)
  - Intestinal perforation [Unknown]
  - Immune reconstitution inflammatory syndrome [Unknown]
